FAERS Safety Report 6160035-8 (Version None)
Quarter: 2009Q2

REPORT INFORMATION
  Report Type: 
  Country: None (occurrence: None)
  Receive Date: 20090420
  Receipt Date: 20090413
  Transmission Date: 20091009
  Serious: Yes (Other)
  Sender: FDA-Public Use
  Company Number: US-BAYER-200912807NA

PATIENT
  Age: 46 Year
  Sex: Female

DRUGS (2)
  1. AVELOX [Suspect]
     Indication: BRONCHITIS
     Dosage: TOTAL DAILY DOSE: 400 MG  UNIT DOSE: 400 MG
     Route: 048
     Dates: start: 20090206
  2. CRESTOR [Suspect]
     Indication: DRUG USE FOR UNKNOWN INDICATION
     Dates: start: 20090205

REACTIONS (9)
  - ANAPHYLACTIC SHOCK [None]
  - DYSPEPSIA [None]
  - FACE OEDEMA [None]
  - FLUSHING [None]
  - PARAESTHESIA [None]
  - PRURITUS [None]
  - PRURITUS GENITAL [None]
  - URTICARIA [None]
  - VOMITING [None]
